FAERS Safety Report 8910635 (Version 2)
Quarter: 2012Q4

REPORT INFORMATION
  Report Type: Spontaneous
  Country: NL (occurrence: None)
  Receive Date: 20120816
  Receipt Date: 20120919
  Transmission Date: 20130627
  Serious: Yes (Other)
  Sender: FDA-Public Use
  Company Number: 2012AP002374

PATIENT
  Age: 30 Year
  Sex: Female

DRUGS (4)
  1. AZATHIOPRINE [Suspect]
     Indication: ULCERATIVE COLITIS
  2. AZATHIOPRINE [Suspect]
     Indication: OFF LABEL USE
  3. PREDNISOLONE [Suspect]
     Indication: ULCERATIVE COLITIS
  4. INFLIXIMAB [Suspect]
     Indication: ULCERATIVE COLITIS

REACTIONS (10)
  - Blood immunoglobulin G increased [None]
  - Blood immunoglobulin M increased [None]
  - Antinuclear antibody positive [None]
  - Double stranded DNA antibody [None]
  - Prothrombin time prolonged [None]
  - Maternal exposure during pregnancy [None]
  - Autoimmune hepatitis [None]
  - Off label use [None]
  - Pregnancy [None]
  - Colitis ulcerative [None]
